FAERS Safety Report 8853353 (Version 1)
Quarter: 2012Q4

REPORT INFORMATION
  Report Type: 
  Country: FR (occurrence: FR)
  Receive Date: 20121022
  Receipt Date: 20121022
  Transmission Date: 20130627
  Serious: Yes (Life-Threatening)
  Sender: FDA-Public Use
  Company Number: FR-ASTRAZENECA-2012SE79864

PATIENT
  Age: 43 Year
  Sex: Male

DRUGS (4)
  1. DIPRIVAN [Suspect]
     Route: 042
     Dates: start: 20120622, end: 20120622
  2. CEFUROXIME [Suspect]
     Route: 042
     Dates: start: 20120622, end: 20120622
  3. ESMERON [Suspect]
     Route: 042
     Dates: start: 20120622, end: 20120622
  4. SUFENTA [Suspect]
     Route: 042
     Dates: start: 20120622, end: 20120622

REACTIONS (1)
  - Anaphylactic shock [Recovered/Resolved]
